FAERS Safety Report 5353044-X (Version None)
Quarter: 2007Q2

REPORT INFORMATION
  Report Type: 
  Country: None (occurrence: None)
  Receive Date: 20070611
  Receipt Date: 20070530
  Transmission Date: 20071010
  Serious: Yes (Hospitalization, Other)
  Sender: FDA-Public Use
  Company Number: JP-PFIZER INC-2007040158

PATIENT
  Sex: Female

DRUGS (4)
  1. GABAPEN [Suspect]
     Indication: EPILEPSY
     Route: 048
  2. VALPROATE SODIUM [Suspect]
     Indication: EPILEPSY
     Dosage: DAILY DOSE:1000MG
     Route: 048
  3. TEGRETOL [Concomitant]
  4. CLOBAZAM [Concomitant]
     Dates: start: 20060623, end: 20070509

REACTIONS (4)
  - CHOLECYSTITIS ACUTE [None]
  - CHOLELITHIASIS [None]
  - GALLBLADDER OBSTRUCTION [None]
  - PANCREATITIS ACUTE [None]
